FAERS Safety Report 4641237-6 (Version None)
Quarter: 2005Q2

REPORT INFORMATION
  Report Type: 
  Country: None (occurrence: None)
  Receive Date: 20050419
  Receipt Date: 20050406
  Transmission Date: 20051028
  Serious: Yes (Hospitalization)
  Sender: FDA-Public Use
  Company Number: 05P-163-0296942-00

PATIENT
  Age: 48 Year
  Sex: Male

DRUGS (17)
  1. KALETRA [Suspect]
     Indication: HIV INFECTION
     Dosage: 6 CAPSULE, 1 IN 1 D, PER ORAL
     Route: 048
     Dates: start: 20041129
  2. ABACAVIR SULFATE + LAMIVUDINE [Suspect]
     Indication: HIV INFECTION
     Dosage: 1 TABLET, 1 IN 1 D, PER ORAL
     Route: 048
     Dates: start: 20041129
  3. ROSIGLITAZONE MALEATE [Concomitant]
  4. HYDROCHLOROTHIAZIDE [Concomitant]
  5. LISINOPRIL [Concomitant]
  6. GLIPIZIDE [Concomitant]
  7. ASPIRIN [Concomitant]
  8. FAMOTIDINE [Concomitant]
  9. ASCORBIC ACID [Concomitant]
  10. CYANOCOBALAMIN [Concomitant]
  11. TOCOPHEROL CONCENTRATE CAP [Concomitant]
  12. GERITOL [Concomitant]
  13. FERROUS SULFATE TAB [Concomitant]
  14. GARLIC [Concomitant]
  15. LOPERAMIDE HYDROCHLORIDE [Concomitant]
  16. DIATUSSIN [Concomitant]
  17. BACTRIM [Concomitant]

REACTIONS (5)
  - ABDOMINAL PAIN UPPER [None]
  - DIABETIC KETOACIDOSIS [None]
  - NAUSEA [None]
  - PANCREATITIS ACUTE [None]
  - TREATMENT NONCOMPLIANCE [None]
